FAERS Safety Report 12474190 (Version 1)
Quarter: 2016Q2

REPORT INFORMATION
  Report Type: Spontaneous
  Country: FR (occurrence: FR)
  Receive Date: 20160616
  Receipt Date: 20160616
  Transmission Date: 20160815
  Serious: Yes (Death, Hospitalization, Other)
  Sender: FDA-Public Use
  Company Number: FR-CITRON PHARMA LLC-B16-0063-AE

PATIENT
  Age: 16 Year
  Sex: Female

DRUGS (6)
  1. TRIGLIDE [Suspect]
     Active Substance: FENOFIBRATE
     Indication: PRODUCT USED FOR UNKNOWN INDICATION
     Dosage: 1 MG, UNK
     Route: 065
  2. IBUPROFEN. [Suspect]
     Active Substance: IBUPROFEN
     Indication: PRODUCT USED FOR UNKNOWN INDICATION
     Dosage: 1 TO 400 MG, UNK
     Route: 065
  3. PARACETAMOL [Suspect]
     Active Substance: ACETAMINOPHEN
     Indication: PRODUCT USED FOR UNKNOWN INDICATION
     Dosage: 3 UNK, UNK
     Route: 065
  4. PREDNISONE. [Suspect]
     Active Substance: PREDNISONE
     Indication: PRODUCT USED FOR UNKNOWN INDICATION
     Dosage: 20 MG, 20 TABLETS
     Route: 065
  5. COLCHICINE. [Suspect]
     Active Substance: COLCHICINE
     Indication: PRODUCT USED FOR UNKNOWN INDICATION
     Dosage: 50-60 COLCHICINE TABLETS
     Route: 065
  6. LOPERAMIDE [Suspect]
     Active Substance: LOPERAMIDE
     Indication: PRODUCT USED FOR UNKNOWN INDICATION
     Dosage: UNK
     Route: 065

REACTIONS (17)
  - Vomiting [Unknown]
  - Somnolence [Unknown]
  - Leukocytosis [Unknown]
  - Metabolic acidosis [Unknown]
  - Disseminated intravascular coagulation [Unknown]
  - Multiple organ dysfunction syndrome [Unknown]
  - Acute kidney injury [Unknown]
  - Respiratory distress [Fatal]
  - Toxicity to various agents [Unknown]
  - Puncture site haemorrhage [Unknown]
  - Ventricular dysfunction [Unknown]
  - Thrombocytopenia [Unknown]
  - Hypotension [Unknown]
  - Cardiogenic shock [Fatal]
  - Renal impairment [Unknown]
  - Anuria [Unknown]
  - Death [Fatal]
